FAERS Safety Report 6213747-1 (Version None)
Quarter: 2009Q2

REPORT INFORMATION
  Report Type: 
  Country: None (occurrence: None)
  Receive Date: 20090602
  Receipt Date: 20090521
  Transmission Date: 20091009
  Serious: Yes (Other)
  Sender: FDA-Public Use
  Company Number: CHPA2009US12143

PATIENT
  Sex: Female

DRUGS (1)
  1. GAS-X ULTRA STRENGTH (NCH) (SIMETHICONE) SOFT GELATIN CAPSULE [Suspect]
     Indication: FLATULENCE
     Dosage: 180 MG, QD, ORAL
     Route: 048
     Dates: start: 20090521, end: 20090521

REACTIONS (4)
  - HAEMATOCHEZIA [None]
  - HEADACHE [None]
  - MALAISE [None]
  - PAIN [None]
